FAERS Safety Report 20562520 (Version 4)
Quarter: 2022Q2

REPORT INFORMATION
  Report Type: Report from Study
  Country: IQ (occurrence: IQ)
  Receive Date: 20220307
  Receipt Date: 20220505
  Transmission Date: 20220720
  Serious: No
  Sender: FDA-Public Use
  Company Number: IQ-BAYER-2022A030047

PATIENT
  Age: 41 Year
  Sex: Female

DRUGS (1)
  1. NEXAVAR [Suspect]
     Active Substance: SORAFENIB
     Indication: Thyroid cancer
     Dosage: UNK
     Dates: start: 202107

REACTIONS (4)
  - Musculoskeletal stiffness [Recovering/Resolving]
  - Skin fissures [Recovering/Resolving]
  - Depression [Not Recovered/Not Resolved]
  - Skin fissures [Recovering/Resolving]

NARRATIVE: CASE EVENT DATE: 20220107
